FAERS Safety Report 6294720-4 (Version None)
Quarter: 2009Q3

REPORT INFORMATION
  Report Type: 
  Country: None (occurrence: None)
  Receive Date: 20090803
  Receipt Date: 20090730
  Transmission Date: 20100115
  Serious: Yes (Hospitalization)
  Sender: FDA-Public Use
  Company Number: B0586524A

PATIENT
  Sex: Female

DRUGS (4)
  1. AMOXICILLIN TRIHYDRATE [Suspect]
     Route: 048
     Dates: start: 20090401, end: 20090505
  2. COUMADIN [Suspect]
     Dosage: 10MG PER DAY
     Route: 048
     Dates: start: 19990101, end: 20090505
  3. KETOPROFEN [Suspect]
     Route: 048
     Dates: start: 20090401, end: 20090505
  4. FUNGIZONE [Concomitant]
     Route: 048
     Dates: start: 20090401, end: 20090505

REACTIONS (4)
  - BLEEDING ANOVULATORY [None]
  - INTERNATIONAL NORMALISED RATIO INCREASED [None]
  - OVERDOSE [None]
  - POTENTIATING DRUG INTERACTION [None]
